FAERS Safety Report 23010433 (Version 4)
Quarter: 2023Q4

REPORT INFORMATION
  Report Type: Spontaneous
  Country: US (occurrence: US)
  Receive Date: 20230929
  Receipt Date: 20231116
  Transmission Date: 20240110
  Serious: No
  Sender: FDA-Public Use
  Company Number: US-PFIZER INC-PV202300152098

PATIENT
  Age: 2 Year
  Sex: Female
  Weight: 10.43 kg

DRUGS (1)
  1. GENOTROPIN [Suspect]
     Active Substance: SOMATROPIN
     Indication: Growth hormone deficiency
     Dosage: 0.4 - 6 DAYS A WEEK, NOT SUNDAY
     Dates: start: 20230831

REACTIONS (5)
  - Irritability [Unknown]
  - Illness [Unknown]
  - Crying [Unknown]
  - Device leakage [Unknown]
  - Circumstance or information capable of leading to device use error [Unknown]

NARRATIVE: CASE EVENT DATE: 20230101
